FAERS Safety Report 14715235 (Version 1)
Quarter: 2018Q2

REPORT INFORMATION
  Report Type: Report from Study
  Country: IT (occurrence: IT)
  Receive Date: 20180404
  Receipt Date: 20180404
  Transmission Date: 20180711
  Serious: Yes (Other)
  Sender: FDA-Public Use
  Company Number: IT-TEVA-2018-IT-877263

PATIENT

DRUGS (11)
  1. CRESTOR [Concomitant]
     Active Substance: ROSUVASTATIN CALCIUM
     Route: 065
  2. CALCIUM D3 SANDOZ [Concomitant]
     Active Substance: CALCIUM\CHOLECALCIFEROL
     Dosage: 1 DOSAGE FORMS DAILY; 1 TABLET EVERY 24 HOURS
     Route: 065
  3. DIBASE [Concomitant]
     Active Substance: CHOLECALCIFEROL
     Dosage: 100000UI/ML 6F, 1 PHIAL/MONTH
     Route: 065
  4. DIBASE [Concomitant]
     Active Substance: CHOLECALCIFEROL
     Dosage: 10000UI/ML 10ML; 30 DROPS/WEEK
     Route: 065
  5. NEOTIGASON [Concomitant]
     Active Substance: ACITRETIN
     Dosage: 2 TABLETS/24 HOURS
     Route: 065
  6. DIBASE [Concomitant]
     Active Substance: CHOLECALCIFEROL
     Dosage: 25000UI/2.5ML; 1 PHIAL/MONTH
     Route: 065
  7. ESKIM [Concomitant]
     Active Substance: OMEGA-3 FATTY ACIDS
     Route: 065
  8. RILPIVIRINE [Suspect]
     Active Substance: RILPIVIRINE
     Indication: HIV INFECTION
     Route: 065
  9. METFORMIN [Concomitant]
     Active Substance: METFORMIN HYDROCHLORIDE
     Route: 065
  10. ABACAVIR W/LAMIVUDINE [Suspect]
     Active Substance: ABACAVIR\LAMIVUDINE
     Indication: HIV INFECTION
     Route: 065
  11. CRESTOR [Concomitant]
     Active Substance: ROSUVASTATIN CALCIUM
     Route: 065

REACTIONS (1)
  - Dyslipidaemia [Unknown]
